FAERS Safety Report 15420445 (Version 1)
Quarter: 2018Q3

REPORT INFORMATION
  Report Type: Spontaneous
  Country: DE (occurrence: DE)
  Receive Date: 20180924
  Receipt Date: 20180924
  Transmission Date: 20181010
  Serious: Yes (Hospitalization, Disabling)
  Sender: FDA-Public Use
  Company Number: DE-ANIPHARMA-2018-DE-000165

PATIENT
  Age: 70 Year
  Sex: Male
  Weight: 87 kg

DRUGS (5)
  1. CARBIMAZOLE [Concomitant]
     Active Substance: CARBIMAZOLE
     Dosage: 2.5MG DAILY
     Route: 048
     Dates: start: 2010
  2. KALINORM [Concomitant]
     Route: 065
  3. CANDESARTAN CILEXETIL. [Suspect]
     Active Substance: CANDESARTAN CILEXETIL
     Dosage: 40MG DAILY
     Route: 048
     Dates: start: 201804
  4. GILOTRIF [Suspect]
     Active Substance: AFATINIB
     Dosage: 30MG DAILY/ 20MG DAILY
     Route: 048
     Dates: start: 20180903
  5. FORTIMEL [Concomitant]
     Active Substance: DIETARY SUPPLEMENT
     Route: 065

REACTIONS (3)
  - Acne [Recovered/Resolved with Sequelae]
  - Paronychia [Recovered/Resolved with Sequelae]
  - Diarrhoea [Recovered/Resolved with Sequelae]

NARRATIVE: CASE EVENT DATE: 20180810
